FAERS Safety Report 6569965-6 (Version None)
Quarter: 2010Q1

REPORT INFORMATION
  Report Type: 
  Country: None (occurrence: None)
  Receive Date: 20100202
  Receipt Date: 20100202
  Transmission Date: 20100710
  Serious: No
  Sender: FDA-Public Use
  Company Number: None

PATIENT
  Age: 25 Year
  Sex: Male
  Weight: 101.6057 kg

DRUGS (1)
  1. TEQUIN [Suspect]
     Indication: SINUSITIS BACTERIAL
     Dosage: 500MG TWICE DAILY PO
     Route: 048
     Dates: start: 20000703, end: 20000710

REACTIONS (6)
  - AGITATION [None]
  - ANXIETY [None]
  - DRY SKIN [None]
  - INSOMNIA [None]
  - PALPITATIONS [None]
  - STEVENS-JOHNSON SYNDROME [None]
